FAERS Safety Report 5126700-6 (Version None)
Quarter: 2006Q4

REPORT INFORMATION
  Report Type: 
  Country: None (occurrence: None)
  Receive Date: 20061013
  Receipt Date: 20061004
  Transmission Date: 20070319
  Serious: Yes (Hospitalization)
  Sender: FDA-Public Use
  Company Number: 2006UW19304

PATIENT
  Age: 91 Year
  Sex: Female

DRUGS (4)
  1. CRESTOR [Suspect]
     Route: 048
  2. LASIX [Suspect]
     Dosage: DOUBLE DOSE
  3. ACE INHIBITOR [Suspect]
     Dosage: LARGE DOSE
  4. TOPROL-XL [Concomitant]

REACTIONS (1)
  - GLOMERULONEPHRITIS [None]
